APPROVED DRUG PRODUCT: ERYTHROMYCIN
Active Ingredient: ERYTHROMYCIN
Strength: 250MG
Dosage Form/Route: TABLET;ORAL
Application: A212015 | Product #001 | TE Code: AB
Applicant: TORRENT PHARMA INC
Approved: Jul 6, 2020 | RLD: No | RS: No | Type: RX